FAERS Safety Report 10501098 (Version 1)
Quarter: 2014Q4

REPORT INFORMATION
  Report Type: Spontaneous
  Country: US (occurrence: None)
  Receive Date: 20141006
  Receipt Date: 20141006
  Transmission Date: 20150528
  Serious: No
  Sender: FDA-Public Use
  Company Number: None

PATIENT
  Age: 65 Year
  Sex: Male
  Weight: 59.4 kg

DRUGS (2)
  1. AMIKACIN [Suspect]
     Active Substance: AMIKACIN
     Dates: start: 20130911, end: 20140407
  2. AZITHROMYCIN [Suspect]
     Active Substance: AZITHROMYCIN ANHYDROUS
     Dosage: 250 MG EVERY DAY PO
     Route: 048
     Dates: start: 20130812, end: 20140414

REACTIONS (1)
  - Ototoxicity [None]

NARRATIVE: CASE EVENT DATE: 20140407
